FAERS Safety Report 4736853-7 (Version None)
Quarter: 2005Q3

REPORT INFORMATION
  Report Type: 
  Country: None (occurrence: None)
  Receive Date: 20050808
  Receipt Date: 20050727
  Transmission Date: 20060218
  Serious: Yes (Other)
  Sender: FDA-Public Use
  Company Number: US-SANOFI-SYNTHELABO-A03200502288

PATIENT
  Sex: Male

DRUGS (13)
  1. PLAVIX [Suspect]
     Indication: ANGIOPLASTY
     Route: 048
     Dates: start: 20031001
  2. PLAVIX [Suspect]
     Route: 048
     Dates: start: 20031001
  3. METFORMIN [Concomitant]
     Route: 048
  4. TOPROL-XL [Concomitant]
     Dosage: ONE-HALF TABLET (25MG) DAILY
     Route: 048
     Dates: start: 20030101
  5. ASPIRIN [Concomitant]
     Route: 048
     Dates: start: 20030101
  6. VITAMIN B-12 [Concomitant]
     Route: 048
     Dates: start: 20030101
  7. FOLIC ACID [Concomitant]
     Dosage: UNK
     Route: 048
  8. VYTORIN [Concomitant]
     Dosage: 10/40 MG ONCE A DAY
     Route: 048
     Dates: start: 20041201
  9. OMEGA 3 FISH OIL [Concomitant]
     Dosage: UNK
     Route: 048
  10. GLUCOSAMINE WITH CHONDROITIN [Concomitant]
     Dosage: UNK
     Route: 048
  11. TUMS [Concomitant]
     Dosage: TWO TO THREE TABLETS ONCE A DAY
     Route: 048
  12. PRILOSEC [Concomitant]
     Dosage: ONE-HALF TABLET ONCE A WEEK
     Route: 048
  13. CQ-10 [Concomitant]
     Route: 048

REACTIONS (3)
  - CONVULSION [None]
  - RASH [None]
  - REFUSAL OF TREATMENT BY PATIENT [None]
